FAERS Safety Report 10585419 (Version 1)
Quarter: 2014Q4

REPORT INFORMATION
  Report Type: Spontaneous
  Country: DE (occurrence: None)
  Receive Date: 20141113
  Receipt Date: 20141113
  Transmission Date: 20150529
  Serious: Yes (Hospitalization)
  Sender: FDA-Public Use
  Company Number: DE-ZYDUS-005433

PATIENT
  Age: 67 Year
  Sex: Male

DRUGS (2)
  1. CLOPIDOGREL [Suspect]
     Active Substance: CLOPIDOGREL BISULFATE
  2. ASPIRIN (ASPIRIN) [Suspect]
     Active Substance: ASPIRIN

REACTIONS (5)
  - Haemoptysis [None]
  - Pulmonary alveolar haemorrhage [None]
  - Dyspnoea [None]
  - Mitral valve incompetence [None]
  - Tricuspid valve incompetence [None]
